FAERS Safety Report 16316848 (Version 5)
Quarter: 2019Q2

REPORT INFORMATION
  Report Type: Report from Study
  Country: None (occurrence: IL)
  Receive Date: 20190515
  Receipt Date: 20190603
  Transmission Date: 20190711
  Serious: Yes (Death, Hospitalization, Other)
  Sender: FDA-Public Use
  Company Number: IL-ABBVIE-19S-082-2780538-00

PATIENT
  Age: 83 Year
  Sex: Male

DRUGS (2)
  1. DUODOPA [Suspect]
     Active Substance: CARBIDOPA\LEVODOPA
     Indication: PARKINSON^S DISEASE
     Route: 050
     Dates: start: 20170402
  2. DUODOPA [Suspect]
     Active Substance: CARBIDOPA\LEVODOPA
     Dosage: CURRENT MD-10 ML, CD RATE- 3.5 ML/ HOUR, CURRENT ED- 2.0 ML
     Route: 050
     Dates: start: 20190512

REACTIONS (6)
  - Pseudomonal bacteraemia [Fatal]
  - Sepsis [Fatal]
  - Atrial fibrillation [Recovering/Resolving]
  - Pneumonia [Fatal]
  - General physical health deterioration [Unknown]
  - Device occlusion [Unknown]

NARRATIVE: CASE EVENT DATE: 20190506
